FAERS Safety Report 25886190 (Version 1)
Quarter: 2025Q4

REPORT INFORMATION
  Report Type: Report from Study
  Country: US (occurrence: US)
  Receive Date: 20251006
  Receipt Date: 20251006
  Transmission Date: 20260118
  Serious: Yes (Hospitalization)
  Sender: ALNYLAM PHARMACEUTICALS
  Company Number: US-ALNYLAM PHARMACEUTICALS, INC.-ALN-2025-005483

PATIENT

DRUGS (1)
  1. GIVLAARI [Suspect]
     Active Substance: GIVOSIRAN SODIUM
     Indication: Porphyria
     Dosage: UNK
     Route: 065

REACTIONS (7)
  - Seizure [Unknown]
  - Ill-defined disorder [Unknown]
  - Gait disturbance [Unknown]
  - Fall [Unknown]
  - Unevaluable event [Unknown]
  - Malaise [Unknown]
  - Therapy interrupted [Unknown]
